FAERS Safety Report 16914676 (Version 1)
Quarter: 2019Q4

REPORT INFORMATION
  Report Type: Spontaneous
  Country: CN (occurrence: CN)
  Receive Date: 20191014
  Receipt Date: 20191014
  Transmission Date: 20200122
  Serious: Yes (Other)
  Sender: FDA-Public Use
  Company Number: CN-PFIZER INC-2019437265

PATIENT
  Age: 81 Year
  Sex: Female

DRUGS (3)
  1. SULPIRIDE [Concomitant]
     Active Substance: SULPIRIDE
     Dosage: 0.5 TABLET, ONE IN THE MORINING AND ONE IN THE EVENING
     Route: 048
  2. CLONAZEPAM. [Concomitant]
     Active Substance: CLONAZEPAM
     Dosage: 0.25 MG DAILY BEFORE SLEEPING
     Route: 048
  3. EFEXOR XR [Suspect]
     Active Substance: VENLAFAXINE HYDROCHLORIDE
     Indication: DEPRESSION
     Dosage: 150 MG, DAILY
     Route: 048
     Dates: start: 2011

REACTIONS (8)
  - Tongue discomfort [Unknown]
  - Productive cough [Unknown]
  - Oral disorder [Unknown]
  - Cough [Unknown]
  - Choking [Unknown]
  - Dry throat [Unknown]
  - Taste disorder [Not Recovered/Not Resolved]
  - Nausea [Unknown]

NARRATIVE: CASE EVENT DATE: 2012
